FAERS Safety Report 6579961-0 (Version None)
Quarter: 2010Q1

REPORT INFORMATION
  Report Type: 
  Country: None (occurrence: None)
  Receive Date: 20100212
  Receipt Date: 20100202
  Transmission Date: 20100710
  Serious: Yes (Other)
  Sender: FDA-Public Use
  Company Number: RO-PFIZER INC-2010013608

PATIENT
  Sex: Female

DRUGS (2)
  1. VFEND [Suspect]
     Indication: VULVOVAGINAL CANDIDIASIS
     Dosage: 200 MG, UNK
     Route: 048
     Dates: start: 20100131, end: 20100131
  2. VFEND [Suspect]
     Indication: STAPHYLOCOCCAL INFECTION

REACTIONS (8)
  - AGITATION [None]
  - DRY MOUTH [None]
  - HEART INJURY [None]
  - HYPERTENSION [None]
  - NAUSEA [None]
  - PARAESTHESIA [None]
  - SALPINGITIS [None]
  - VISUAL IMPAIRMENT [None]
